FAERS Safety Report 8153367-5 (Version None)
Quarter: 2012Q1

REPORT INFORMATION
  Report Type: 
  Country: None (occurrence: None)
  Receive Date: 20120221
  Receipt Date: 20120216
  Transmission Date: 20120608
  Serious: No
  Sender: FDA-Public Use
  Company Number: US-PFIZER INC-2012042486

PATIENT
  Sex: Female

DRUGS (5)
  1. HYGROTON [Concomitant]
     Dosage: UNK
  2. POTASSIUM [Concomitant]
     Dosage: UNK
  3. XANAX [Concomitant]
     Dosage: UNK
  4. CHANTIX [Suspect]
     Indication: SMOKING CESSATION THERAPY
     Dosage: 0.5 MG, 1X/DAY
     Route: 048
  5. CHANTIX [Suspect]
     Dosage: UNK
     Route: 048

REACTIONS (3)
  - ANXIETY [None]
  - FEELING ABNORMAL [None]
  - NAUSEA [None]
